FAERS Safety Report 4993524-X (Version None)
Quarter: 2006Q2

REPORT INFORMATION
  Report Type: 
  Country: None (occurrence: None)
  Receive Date: 20060503
  Receipt Date: 20060503
  Transmission Date: 20061013
  Serious: Yes (Other)
  Sender: FDA-Public Use
  Company Number: None

PATIENT
  Age: 71 Year
  Sex: Male
  Weight: 58.9676 kg

DRUGS (16)
  1. ARANESP [Suspect]
     Indication: ANAEMIA OF MALIGNANT DISEASE
     Dosage: 200MCG SQ
     Route: 058
     Dates: start: 20060413
  2. ARANESP [Suspect]
     Indication: COLON CANCER METASTATIC
     Dosage: 200MCG SQ
     Route: 058
     Dates: start: 20060413
  3. ARANESP [Suspect]
     Indication: METASTASES TO LIVER
     Dosage: 200MCG SQ
     Route: 058
     Dates: start: 20060413
  4. ARANESP [Suspect]
     Indication: ANAEMIA OF MALIGNANT DISEASE
     Dosage: 200MCG SQ
     Route: 058
     Dates: start: 20060427
  5. ARANESP [Suspect]
     Indication: COLON CANCER METASTATIC
     Dosage: 200MCG SQ
     Route: 058
     Dates: start: 20060427
  6. ARANESP [Suspect]
     Indication: METASTASES TO LIVER
     Dosage: 200MCG SQ
     Route: 058
     Dates: start: 20060427
  7. ARANESP [Suspect]
  8. XELODA [Concomitant]
  9. MAGNESIUM [Concomitant]
  10. CALCIUM GLUCONATE [Concomitant]
  11. POTASSIUM [Concomitant]
  12. DECADRON [Concomitant]
  13. ALOXI [Concomitant]
  14. AVASTIN [Concomitant]
  15. COMPAZINE [Concomitant]
  16. OXALIPLATIN [Concomitant]

REACTIONS (7)
  - ASTHENIA [None]
  - BLOOD PRESSURE INCREASED [None]
  - DIZZINESS [None]
  - FATIGUE [None]
  - HYPOAESTHESIA [None]
  - PARAESTHESIA [None]
  - VISION BLURRED [None]
